FAERS Safety Report 7159880-1 (Version None)
Quarter: 2010Q4

REPORT INFORMATION
  Report Type: 
  Country: None (occurrence: None)
  Receive Date: 20101214
  Receipt Date: 20101206
  Transmission Date: 20110411
  Serious: Yes (Hospitalization, Other)
  Sender: FDA-Public Use
  Company Number: JP-ROCHE-690861

PATIENT
  Sex: Female
  Weight: 58 kg

DRUGS (32)
  1. ACTEMRA [Suspect]
     Indication: RHEUMATOID ARTHRITIS
     Route: 041
     Dates: start: 20080804, end: 20080804
  2. ACTEMRA [Suspect]
     Route: 041
     Dates: start: 20080901, end: 20080901
  3. ACTEMRA [Suspect]
     Route: 041
     Dates: start: 20080929, end: 20080929
  4. ACTEMRA [Suspect]
     Route: 041
     Dates: start: 20081027, end: 20081027
  5. ACTEMRA [Suspect]
     Route: 041
     Dates: start: 20081125, end: 20081125
  6. ACTEMRA [Suspect]
     Route: 041
     Dates: start: 20081224, end: 20081224
  7. ACTEMRA [Suspect]
     Route: 041
     Dates: start: 20090122, end: 20090122
  8. ACTEMRA [Suspect]
     Route: 041
     Dates: start: 20090223, end: 20090223
  9. ACTEMRA [Suspect]
     Route: 041
     Dates: start: 20090323, end: 20090323
  10. ACTEMRA [Suspect]
     Route: 041
     Dates: start: 20090420, end: 20090420
  11. ACTEMRA [Suspect]
     Route: 041
     Dates: start: 20090518, end: 20090518
  12. ACTEMRA [Suspect]
     Route: 041
     Dates: start: 20090615, end: 20090615
  13. ACTEMRA [Suspect]
     Route: 041
     Dates: start: 20090713, end: 20090713
  14. ACTEMRA [Suspect]
     Route: 041
     Dates: end: 20100209
  15. ACTEMRA [Suspect]
     Route: 041
     Dates: start: 20100219, end: 20100219
  16. ACTEMRA [Suspect]
     Route: 041
     Dates: end: 20100713
  17. RHEUMATREX [Suspect]
     Indication: RHEUMATOID ARTHRITIS
     Dosage: NOTE: 4MG42MG
     Route: 048
     Dates: end: 20100219
  18. ISCOTIN [Concomitant]
     Dosage: DOSE FORM: PERORAL AGENT
     Route: 048
  19. ISCOTIN [Concomitant]
     Route: 048
     Dates: end: 20091224
  20. PREDNISOLONE [Concomitant]
     Dosage: DOSE FORM: PERORAL AGENT
     Route: 048
     Dates: end: 20090323
  21. PREDNISOLONE [Concomitant]
     Route: 048
     Dates: start: 20090324, end: 20090810
  22. PREDNISOLONE [Concomitant]
     Route: 048
     Dates: start: 20090811, end: 20091030
  23. TAKEPRON [Concomitant]
     Dosage: DOSE FORM: PERORAL AGENT
     Route: 048
     Dates: end: 20091224
  24. TAKEPRON [Concomitant]
     Route: 048
     Dates: start: 20091225
  25. LOXONIN [Concomitant]
     Dosage: DRUG: LOXOPROFEN SODIUM
     Route: 048
  26. FOLIAMIN [Concomitant]
     Dosage: DOSE FORM: PERORAL AGENT
     Route: 048
  27. LIPITOR [Concomitant]
     Dosage: DRUG:ATORVASTATIN CALCIUM
     Route: 048
     Dates: end: 20091030
  28. BONALON [Concomitant]
     Dosage: DRUG: BONALON 35MG(ALENDRONATE SODIUM HYDRATE)
     Route: 048
  29. KETOPROFEN [Concomitant]
     Dosage: MOHRUS TAPE L(KETOPROFEN), TAPE: TAPE
     Route: 061
  30. KETOPROFEN [Concomitant]
     Dosage: FORM: TAPE, ROUTE: TOPICAL, PROPER QUANTITY
     Route: 061
  31. ALFAROL [Concomitant]
     Dosage: DRUG: ALFAROL CAPSULES(ALFACALCIDOL), DOSE FORM: PERORAL AGENT
     Route: 048
     Dates: end: 20090518
  32. ALFAROL [Concomitant]
     Route: 048
     Dates: start: 20090519

REACTIONS (1)
  - INTERSTITIAL LUNG DISEASE [None]
